FAERS Safety Report 4371221-1 (Version None)
Quarter: 2004Q2

REPORT INFORMATION
  Report Type: 
  Country: None (occurrence: None)
  Receive Date: 20040604
  Receipt Date: 20040527
  Transmission Date: 20050107
  Serious: Yes (Hospitalization)
  Sender: FDA-Public Use
  Company Number: PHRM2004FR01958

PATIENT
  Age: 55 Year
  Sex: Female

DRUGS (2)
  1. NEORAL [Suspect]
     Indication: RENAL TRANSPLANT
  2. CORTICOSTEROID NOS [Concomitant]
     Indication: RENAL TRANSPLANT

REACTIONS (1)
  - HYPERTHERMIA [None]
